FAERS Safety Report 8521046-8 (Version None)
Quarter: 2012Q3

REPORT INFORMATION
  Report Type: 
  Country: None (occurrence: None)
  Receive Date: 20120719
  Receipt Date: 20120711
  Transmission Date: 20120928
  Serious: Yes (Hospitalization, Other)
  Sender: FDA-Public Use
  Company Number: SE-JNJFOC-20071203502

PATIENT
  Age: 60 Year
  Sex: Male

DRUGS (4)
  1. REMICADE [Suspect]
     Indication: RHEUMATOID ARTHRITIS
     Route: 042
     Dates: start: 20000615, end: 20071010
  2. ORUDIS [Concomitant]
     Route: 048
  3. ASPIRIN [Concomitant]
     Route: 048
  4. METHOTREXATE [Concomitant]
     Route: 048

REACTIONS (1)
  - MALIGNANT MELANOMA [None]
